FAERS Safety Report 21401988 (Version 1)
Quarter: 2022Q4

REPORT INFORMATION
  Report Type: Other
  Country: US (occurrence: None)
  Receive Date: 20221003
  Receipt Date: 20221003
  Transmission Date: 20230113
  Serious: Yes (Hospitalization, Other)
  Sender: FDA-Public Use
  Company Number: US-ROCHE-2001972

PATIENT
  Age: 70 Year
  Sex: Male
  Weight: 118.04 kg

DRUGS (4)
  1. RITUXAN [Suspect]
     Active Substance: RITUXIMAB
     Indication: Relapsing multiple sclerosis
     Route: 041
  2. OCREVUS [Suspect]
     Active Substance: OCRELIZUMAB
     Indication: Primary progressive multiple sclerosis
     Dosage: LAST DATE OF TREATMENT ON 08/29/2019
     Route: 042
     Dates: start: 2018
  3. OCREVUS [Suspect]
     Active Substance: OCRELIZUMAB
     Route: 042
  4. VELTASSA [Concomitant]
     Active Substance: PATIROMER
     Dates: start: 20220909

REACTIONS (8)
  - Urinary tract infection [Recovered/Resolved]
  - Blood potassium increased [Recovered/Resolved]
  - Blood sodium decreased [Recovering/Resolving]
  - Chronic kidney disease [Not Recovered/Not Resolved]
  - Type 2 diabetes mellitus [Unknown]
  - Off label use [Unknown]
  - Drug hypersensitivity [Not Recovered/Not Resolved]
  - Depression [Unknown]

NARRATIVE: CASE EVENT DATE: 20220501
